FAERS Safety Report 23821548 (Version 1)
Quarter: 2024Q2

REPORT INFORMATION
  Report Type: Spontaneous
  Country: US (occurrence: None)
  Receive Date: 20240504
  Receipt Date: 20240504
  Transmission Date: 20240715
  Serious: Yes (Life-Threatening, Hospitalization)
  Sender: FDA-Public Use
  Company Number: None

PATIENT
  Age: 55 Year
  Sex: Male
  Weight: 84.3 kg

DRUGS (1)
  1. CEFEPIME HYDROCHLORIDE [Suspect]
     Active Substance: CEFEPIME HYDROCHLORIDE
     Indication: Bacterial infection
     Dosage: FREQUENCY : TWICE A DAY;?
     Route: 042
     Dates: start: 20220327, end: 20220406

REACTIONS (5)
  - Aphasia [None]
  - Confusional state [None]
  - Encephalopathy [None]
  - Neurotoxicity [None]
  - Memory impairment [None]

NARRATIVE: CASE EVENT DATE: 20220406
